FAERS Safety Report 8260640-9 (Version None)
Quarter: 2012Q2

REPORT INFORMATION
  Report Type: 
  Country: None (occurrence: None)
  Receive Date: 20120405
  Receipt Date: 20120326
  Transmission Date: 20120825
  Serious: Yes (Hospitalization, Other)
  Sender: FDA-Public Use
  Company Number: US-BRISTOL-MYERS SQUIBB COMPANY-16477325

PATIENT
  Sex: Male
  Weight: 73 kg

DRUGS (3)
  1. SINEMET CR [Suspect]
     Indication: PARKINSON'S DISEASE
     Dosage: 1DF= 25-250MG(1.5 TAB)
  2. MICARDIS [Concomitant]
     Indication: BLOOD PRESSURE
  3. HYDROCHLOROTHIAZIDE [Concomitant]

REACTIONS (5)
  - ARTHRITIS [None]
  - INTERVERTEBRAL DISC DISORDER [None]
  - WEIGHT INCREASED [None]
  - BLINDNESS UNILATERAL [None]
  - FALL [None]
